FAERS Safety Report 6149181-2 (Version None)
Quarter: 2009Q2

REPORT INFORMATION
  Report Type: 
  Country: None (occurrence: None)
  Receive Date: 20090407
  Receipt Date: 20090402
  Transmission Date: 20091009
  Serious: Yes (Disabling)
  Sender: FDA-Public Use
  Company Number: OSCN-NO-0604S-0092

PATIENT
  Age: 33 Year
  Sex: Female
  Weight: 66 kg

DRUGS (2)
  1. OMNISCAN [Suspect]
     Indication: DRUG USE FOR UNKNOWN INDICATION
     Dosage: SINGLE DOSE, I.V.; 41 ML SINGLE DOSE, I.V
     Route: 042
     Dates: start: 20041201, end: 20041201
  2. OMNISCAN [Suspect]
     Indication: DRUG USE FOR UNKNOWN INDICATION
     Dosage: SINGLE DOSE, I.V.; 41 ML SINGLE DOSE, I.V
     Route: 042
     Dates: start: 20030101, end: 20050101

REACTIONS (23)
  - ABDOMINAL ADHESIONS [None]
  - ARTERIOSCLEROSIS CORONARY ARTERY [None]
  - ASTHENIA [None]
  - CARDIAC DISORDER [None]
  - CARDIAC PACEMAKER INSERTION [None]
  - CAROTID ARTERY DISEASE [None]
  - ELECTROCARDIOGRAM ABNORMAL [None]
  - FAT TISSUE INCREASED [None]
  - FATIGUE [None]
  - FISTULA [None]
  - FLUID RETENTION [None]
  - GASTRIC DISORDER [None]
  - INFECTION [None]
  - MUSCULOSKELETAL CHEST PAIN [None]
  - MUSCULOSKELETAL PAIN [None]
  - NEPHROGENIC SYSTEMIC FIBROSIS [None]
  - PAIN IN EXTREMITY [None]
  - PELVIC ABSCESS [None]
  - PERICARDIAL CALCIFICATION [None]
  - PERICARDIAL DISEASE [None]
  - PULMONARY OEDEMA [None]
  - SYNCOPE [None]
  - WEIGHT DECREASED [None]
